FAERS Safety Report 16336814 (Version 1)
Quarter: 2019Q2

REPORT INFORMATION
  Report Type: Spontaneous
  Country: US (occurrence: US)
  Receive Date: 20190415
  Receipt Date: 20190415
  Transmission Date: 20190711
  Serious: Yes (Other)
  Sender: FDA-Public Use
  Company Number: None

PATIENT
  Age: 55 Year
  Sex: Male
  Weight: 113.4 kg

DRUGS (1)
  1. LIDOCAINE  5% PATCH [Suspect]
     Active Substance: LIDOCAINE
     Indication: SPINAL STENOSIS
     Dosage: 3 PATCHES DAILY
     Route: 058
     Dates: start: 201411

REACTIONS (2)
  - Device ineffective [None]
  - Device leakage [None]

NARRATIVE: CASE EVENT DATE: 20190402
